FAERS Safety Report 17308272 (Version 1)
Quarter: 2020Q1

REPORT INFORMATION
  Report Type: Spontaneous
  Country: IT (occurrence: IT)
  Receive Date: 20200123
  Receipt Date: 20200123
  Transmission Date: 20200409
  Serious: Yes (Hospitalization)
  Sender: FDA-Public Use
  Company Number: IT-MYLANLABS-2020M1007174

PATIENT
  Age: 81 Year
  Sex: Female

DRUGS (3)
  1. RIFACOL [Suspect]
     Active Substance: RIFAXIMIN
     Indication: DIVERTICULUM
     Dosage: 200 MILLIGRAM, QD
     Route: 048
  2. MIRTAZAPINA ACTAVIS [Suspect]
     Active Substance: MIRTAZAPINE
     Indication: PRODUCT USED FOR UNKNOWN INDICATION
     Dosage: 450 MILLIGRAM, TOTAL
     Route: 048
  3. GABAPENTIN MYLAN GENERICS 100 MG CAPSULE RIGIDE [Suspect]
     Active Substance: GABAPENTIN
     Indication: PRODUCT USED FOR UNKNOWN INDICATION
     Dosage: 1 GRAM, TOTAL
     Route: 048

REACTIONS (3)
  - Balance disorder [Unknown]
  - Overdose [Unknown]
  - Sopor [Unknown]

NARRATIVE: CASE EVENT DATE: 20190523
